FAERS Safety Report 16999555 (Version 1)
Quarter: 2019Q4

REPORT INFORMATION
  Report Type: Spontaneous
  Country: US (occurrence: US)
  Receive Date: 20191105
  Receipt Date: 20191105
  Transmission Date: 20200122
  Serious: No
  Sender: FDA-Public Use
  Company Number: US-JNJFOC-20191024956

PATIENT
  Sex: Female
  Weight: 55.39 kg

DRUGS (7)
  1. BENADRYL [Suspect]
     Active Substance: DIPHENHYDRAMINE HYDROCHLORIDE
     Indication: PREMEDICATION
     Dosage: 50MG MONTHLY WITH INFUSIONS
     Route: 048
     Dates: start: 2019
  2. DARZALEX [Concomitant]
     Active Substance: DARATUMUMAB
     Indication: PRODUCT USED FOR UNKNOWN INDICATION
     Dosage: CONSUMER BEGAN DARZALEX MAY/2018. CONSUMER REPORTED SHE TOOK MEDICATION UNTIL OCT/2018 THEN STOPPED
     Route: 065
     Dates: start: 201805, end: 201810
  3. DARZALEX [Concomitant]
     Active Substance: DARATUMUMAB
     Route: 065
     Dates: start: 2019
  4. REVLIMID [Concomitant]
     Active Substance: LENALIDOMIDE
     Indication: PRODUCT USED FOR UNKNOWN INDICATION
     Route: 065
  5. ACYCLOVIR                          /00587301/ [Concomitant]
     Active Substance: ACYCLOVIR
     Dosage: TWICE DAILY
     Route: 065
  6. DEXAMETHASONE. [Concomitant]
     Active Substance: DEXAMETHASONE
     Indication: PREMEDICATION
     Route: 065
     Dates: start: 2019
  7. TYLENOL [Suspect]
     Active Substance: ACETAMINOPHEN
     Indication: PREMEDICATION
     Dosage: ^2 TABS^ MONTHLY WITH INFUSIONS
     Route: 048
     Dates: start: 2019

REACTIONS (2)
  - Product use in unapproved indication [Unknown]
  - Off label use [Unknown]
